FAERS Safety Report 20733411 (Version 1)
Quarter: 2022Q2

REPORT INFORMATION
  Report Type: Spontaneous
  Country: US (occurrence: US)
  Receive Date: 20220421
  Receipt Date: 20220421
  Transmission Date: 20220721
  Serious: Yes (Hospitalization)
  Sender: FDA-Public Use
  Company Number: US-BRISTOL-MYERS SQUIBB COMPANY-2022-020573

PATIENT
  Age: 77 Year
  Sex: Male
  Weight: 75.296 kg

DRUGS (1)
  1. THALOMID [Suspect]
     Active Substance: THALIDOMIDE
     Indication: Myelofibrosis
     Route: 048
     Dates: start: 20220309, end: 20220331

REACTIONS (6)
  - Pharyngitis [Unknown]
  - Hypotension [Unknown]
  - Blood glucose increased [Unknown]
  - Heart rate decreased [Unknown]
  - Platelet count decreased [Unknown]
  - Unintentional use for unapproved indication [Unknown]
